FAERS Safety Report 8792708 (Version 1)
Quarter: 2012Q4

REPORT INFORMATION
  Report Type: 
  Country: US (occurrence: US)
  Receive Date: 20120918
  Receipt Date: 20120918
  Transmission Date: 20130627
  Serious: Yes (Death)
  Sender: FDA-Public Use
  Company Number: US-GLAXOSMITHKLINE-A0992925A

PATIENT
  Sex: Male

DRUGS (2)
  1. ADVAIR [Suspect]
     Indication: EMPHYSEMA
     Route: 055
  2. VENTOLIN [Suspect]
     Indication: EMPHYSEMA
     Route: 055

REACTIONS (2)
  - Lung neoplasm malignant [Fatal]
  - Emphysema [Fatal]
